FAERS Safety Report 24710073 (Version 1)
Quarter: 2024Q4

REPORT INFORMATION
  Report Type: Other
  Country: US (occurrence: US)
  Receive Date: 20241209
  Receipt Date: 20241209
  Transmission Date: 20250115
  Serious: Yes (Other)
  Sender: ANI
  Company Number: US-ANIPHARMA-013100

PATIENT
  Age: 20 Year
  Sex: Female

DRUGS (6)
  1. CYCLOPHOSPHAMIDE [Suspect]
     Active Substance: CYCLOPHOSPHAMIDE
     Indication: Ewing^s sarcoma metastatic
  2. VINCRISTINE [Concomitant]
     Active Substance: VINCRISTINE
     Indication: Ewing^s sarcoma metastatic
  3. DOXORUBICIN [Concomitant]
     Active Substance: DOXORUBICIN
     Indication: Ewing^s sarcoma metastatic
  4. IFOSFAMIDE [Concomitant]
     Active Substance: IFOSFAMIDE
     Indication: Ewing^s sarcoma metastatic
  5. ETOPOSIDE [Concomitant]
     Active Substance: ETOPOSIDE
     Indication: Ewing^s sarcoma metastatic
  6. GANITUMAB [Concomitant]
     Active Substance: GANITUMAB
     Indication: Ewing^s sarcoma metastatic

REACTIONS (1)
  - Osteonecrosis [Unknown]
